FAERS Safety Report 25059264 (Version 1)
Quarter: 2025Q1

REPORT INFORMATION
  Report Type: Spontaneous
  Country: US (occurrence: None)
  Receive Date: 20250308
  Receipt Date: 20250308
  Transmission Date: 20250409
  Serious: Yes (Disabling)
  Sender: FDA-CTU
  Company Number: None

PATIENT
  Age: 5 Year
  Sex: Female
  Weight: 17.1 kg

DRUGS (5)
  1. MONTELUKAST SODIUM [Suspect]
     Active Substance: MONTELUKAST SODIUM
     Indication: Obstructive sleep apnoea syndrome
     Dosage: 1 TABLET AT BEDTIME ORAL
     Route: 048
     Dates: start: 20241109, end: 20250308
  2. CIMETIDINE [Concomitant]
     Active Substance: CIMETIDINE
  3. VITAMIN D [Concomitant]
     Active Substance: VITAMIN D NOS
  4. ZYRTEC [Concomitant]
     Active Substance: CETIRIZINE HYDROCHLORIDE
  5. PRN [Concomitant]

REACTIONS (5)
  - Brain fog [None]
  - Anxiety [None]
  - Memory impairment [None]
  - Irritability [None]
  - Poor quality sleep [None]

NARRATIVE: CASE EVENT DATE: 20241109
